FAERS Safety Report 9205101 (Version 2)
Quarter: 2013Q2

REPORT INFORMATION
  Report Type: Spontaneous
  Country: PT (occurrence: PT)
  Receive Date: 20130402
  Receipt Date: 20130415
  Transmission Date: 20140414
  Serious: Yes (Death, Hospitalization)
  Sender: FDA-Public Use
  Company Number: PT-TEVA-394797ISR

PATIENT
  Age: 88 Year
  Sex: Female

DRUGS (1)
  1. AMOXICILLIN W/CLAVULANIC ACID TEVA [Suspect]
     Indication: URINARY TRACT INFECTION
     Route: 048

REACTIONS (1)
  - Megacolon [Fatal]
